FAERS Safety Report 4957411-5 (Version None)
Quarter: 2006Q1

REPORT INFORMATION
  Report Type: 
  Country: None (occurrence: None)
  Receive Date: 20060327
  Receipt Date: 20060317
  Transmission Date: 20060701
  Serious: Yes (Hospitalization)
  Sender: FDA-Public Use
  Company Number: 2005-12-0671

PATIENT
  Age: 42 Year
  Sex: Female
  Weight: 75.2971 kg

DRUGS (13)
  1. PEG-INTRON [Suspect]
     Indication: HEPATITIS C
     Dosage: 96 MCG* QWK SUBCUTANEOUS
     Route: 058
     Dates: start: 20051028, end: 20051031
  2. PEG-INTRON [Suspect]
     Indication: HEPATITIS C
     Dosage: 96 MCG* QWK SUBCUTANEOUS
     Route: 058
     Dates: start: 20051211
  3. RIBAVIRIN [Suspect]
     Indication: HEPATITIS C
     Dosage: 1000 MG* QD ORAL
     Route: 048
     Dates: start: 20051028, end: 20051031
  4. RIBAVIRIN [Suspect]
     Indication: HEPATITIS C
     Dosage: 1000 MG* QD ORAL
     Route: 048
     Dates: start: 20051211
  5. GLUCOPHAGE [Concomitant]
  6. LOPID [Concomitant]
  7. PROVERA [Concomitant]
  8. PROZAC [Concomitant]
  9. SEROQUEL [Concomitant]
  10. VICODIN [Concomitant]
  11. XANAX [Concomitant]
  12. PRENATAL VITAMINS [Concomitant]
  13. PRILOSEC OTC [Concomitant]

REACTIONS (23)
  - AGITATION [None]
  - ARTHRALGIA [None]
  - BACK PAIN [None]
  - BONE PAIN [None]
  - CHILLS [None]
  - EAR INFECTION [None]
  - EYE PAIN [None]
  - HERPES SIMPLEX [None]
  - INFLUENZA LIKE ILLNESS [None]
  - INJECTION SITE RASH [None]
  - IRRITABILITY [None]
  - MOOD SWINGS [None]
  - MYALGIA [None]
  - NAUSEA [None]
  - PATELLA FRACTURE [None]
  - PHARMACEUTICAL PRODUCT COMPLAINT [None]
  - PHARYNGOLARYNGEAL PAIN [None]
  - PYREXIA [None]
  - RASH ERYTHEMATOUS [None]
  - RASH PRURITIC [None]
  - ROAD TRAFFIC ACCIDENT [None]
  - TREMOR [None]
  - WALKING AID USER [None]
